FAERS Safety Report 21091672 (Version 2)
Quarter: 2022Q3

REPORT INFORMATION
  Report Type: Spontaneous
  Country: AU (occurrence: AU)
  Receive Date: 20220717
  Receipt Date: 20220808
  Transmission Date: 20221027
  Serious: Yes (Other)
  Sender: FDA-Public Use
  Company Number: AU-TEVA-2022-AU-2055840

PATIENT
  Age: 67 Year
  Sex: Male

DRUGS (1)
  1. IMATINIB [Suspect]
     Active Substance: IMATINIB
     Indication: Chronic myeloid leukaemia
     Dosage: UNIT DOSE: 400MILLGRAM
     Route: 048

REACTIONS (12)
  - Surgery [Recovered/Resolved]
  - Dyspnoea [Not Recovered/Not Resolved]
  - Oedema peripheral [Not Recovered/Not Resolved]
  - Palpitations [Not Recovered/Not Resolved]
  - Lethargy [Not Recovered/Not Resolved]
  - Fatigue [Not Recovered/Not Resolved]
  - Cardiac disorder [Unknown]
  - Lung disorder [Not Recovered/Not Resolved]
  - Pleural effusion [Not Recovered/Not Resolved]
  - Therapeutic response decreased [Unknown]
  - Emotional distress [Unknown]
  - Philadelphia chromosome positive [Not Recovered/Not Resolved]

NARRATIVE: CASE EVENT DATE: 20180202
